FAERS Safety Report 5956428-1 (Version None)
Quarter: 2008Q4

REPORT INFORMATION
  Report Type: 
  Country: None (occurrence: None)
  Receive Date: 20081118
  Receipt Date: 20081110
  Transmission Date: 20090506
  Serious: Yes (Other)
  Sender: FDA-Public Use
  Company Number: US-BAYER-200838224NA

PATIENT

DRUGS (1)
  1. MOXIFLOXACIN HYDROCHLORIDE [Suspect]
     Indication: PNEUMONIA

REACTIONS (3)
  - BALANCE DISORDER [None]
  - LACERATION [None]
  - UNEVALUABLE EVENT [None]
